FAERS Safety Report 25706109 (Version 1)
Quarter: 2025Q3

REPORT INFORMATION
  Report Type: Spontaneous
  Country: EU (occurrence: EU)
  Receive Date: 20250820
  Receipt Date: 20250820
  Transmission Date: 20251021
  Serious: Yes (Other)
  Sender: IDORSIA PHARMACEUTICALS
  Company Number: None

PATIENT
  Age: 74 Year
  Sex: Female
  Weight: 62 kg

DRUGS (1)
  1. QUVIVIQ [Suspect]
     Active Substance: DARIDOREXANT
     Indication: Insomnia
     Dosage: 50 MG, QD, AT BEDTIME
     Route: 048
     Dates: start: 20250528, end: 20250801

REACTIONS (1)
  - Memory impairment [Recovering/Resolving]

NARRATIVE: CASE EVENT DATE: 20250501
